FAERS Safety Report 12161126 (Version 1)
Quarter: 2016Q1

REPORT INFORMATION
  Report Type: Spontaneous
  Country: BR (occurrence: BR)
  Receive Date: 20160308
  Receipt Date: 20160308
  Transmission Date: 20160526
  Serious: Yes (Other)
  Sender: FDA-Public Use
  Company Number: BR-ASTRAZENECA-2016SE25863

PATIENT
  Age: 84 Year
  Sex: Male
  Weight: 74.5 kg

DRUGS (17)
  1. FLUOXETINE [Concomitant]
     Active Substance: FLUOXETINE HYDROCHLORIDE
  2. DAPAGLIFLOZIN [Suspect]
     Active Substance: DAPAGLIFLOZIN
     Route: 048
  3. INSULIN GLARGINE [Concomitant]
     Active Substance: INSULIN GLARGINE
     Dosage: 20 UNITS/DAY
  4. INSULIN GLARGINE [Concomitant]
     Active Substance: INSULIN GLARGINE
     Dates: start: 20070810
  5. CARVEDILOL. [Concomitant]
     Active Substance: CARVEDILOL
  6. METFORMIN [Concomitant]
     Active Substance: METFORMIN HYDROCHLORIDE
     Dates: start: 20140517
  7. SIMVASTATIN. [Concomitant]
     Active Substance: SIMVASTATIN
  8. METFORMIN [Concomitant]
     Active Substance: METFORMIN HYDROCHLORIDE
  9. ASPIRIN. [Concomitant]
     Active Substance: ASPIRIN
  10. GLIBENCLAMIDE [Concomitant]
     Active Substance: GLYBURIDE
     Dosage: FOUR TIMES A DAY
  11. INSULIN GLARGINE [Concomitant]
     Active Substance: INSULIN GLARGINE
  12. METFORMIN [Concomitant]
     Active Substance: METFORMIN HYDROCHLORIDE
     Dates: start: 20030610
  13. NPH INSULIN [Concomitant]
     Active Substance: INSULIN BEEF
     Dosage: 10+06 IU/DAY
  14. INSULIN GLULISINE [Concomitant]
     Active Substance: INSULIN GLULISINE
     Dosage: 6 IU BEFORE LUNCH AND DINNER
  15. ENALAPRIL [Concomitant]
     Active Substance: ENALAPRIL
  16. METFORMIN [Concomitant]
     Active Substance: METFORMIN HYDROCHLORIDE
     Dates: start: 20030316, end: 20030822
  17. NPH INSULIN [Concomitant]
     Active Substance: INSULIN BEEF

REACTIONS (11)
  - Blood glucose increased [Recovered/Resolved]
  - High density lipoprotein decreased [Unknown]
  - Blood triglycerides increased [Recovered/Resolved]
  - Low density lipoprotein increased [Recovered/Resolved]
  - Blood urea increased [Recovered/Resolved]
  - Blood creatinine increased [Recovered/Resolved]
  - Prostate cancer [Unknown]
  - Blood uric acid increased [Recovered/Resolved]
  - Fatigue [Unknown]
  - Blood cholesterol increased [Recovered/Resolved]
  - Weight fluctuation [Unknown]

NARRATIVE: CASE EVENT DATE: 20150707
